FAERS Safety Report 8184236-2 (Version None)
Quarter: 2012Q1

REPORT INFORMATION
  Report Type: 
  Country: None (occurrence: None)
  Receive Date: 20120305
  Receipt Date: 20120302
  Transmission Date: 20120608
  Serious: Yes (Death, Life-Threatening, Hospitalization, Other)
  Sender: FDA-Public Use
  Company Number: DE-BAYER-2012-017361

PATIENT
  Age: 82 Year
  Sex: Male
  Weight: 97 kg

DRUGS (10)
  1. BISOPROLOL FUMARATE [Concomitant]
     Dosage: 5 / 12.5 MG
  2. SPIRONOLACTONE [Concomitant]
     Dosage: 25 MG, OM
  3. ASPIRIN [Suspect]
     Dosage: 100 MG, OM
     Dates: start: 20120215, end: 20120217
  4. SIMVASTATIN [Concomitant]
     Dosage: 20 MG, HS
  5. FERRO SANOL DUODENOL MITE [Concomitant]
     Dosage: 1 IU, OM
  6. MAGNESIOCARD [Concomitant]
     Dosage: 1 IU, OM
  7. PANTOPRAZOLE [Concomitant]
     Dosage: 40 MG, BID
  8. XARELTO 20MG [Interacting]
     Dosage: 20 MG, UNK
     Dates: start: 20120215, end: 20120217
  9. CLOPIDOGREL [Interacting]
     Dosage: 75 MG, OM
     Dates: start: 20120215, end: 20120217
  10. TORSEMIDE [Concomitant]
     Dosage: 10 MG, BID

REACTIONS (3)
  - CEREBROVASCULAR ACCIDENT [None]
  - MOUTH HAEMORRHAGE [None]
  - CEREBRAL HAEMORRHAGE [None]
